FAERS Safety Report 9349802 (Version 2)
Quarter: 2013Q2

REPORT INFORMATION
  Report Type: Spontaneous
  Country: DK (occurrence: DK)
  Receive Date: 20130614
  Receipt Date: 20130614
  Transmission Date: 20140414
  Serious: Yes (Life-Threatening, Hospitalization, Disabling, Other)
  Sender: FDA-Public Use
  Company Number: DK-009507513-2007-160622-NL

PATIENT
  Age: 31 Year
  Sex: Female
  Weight: 82 kg

DRUGS (4)
  1. MERCILON [Suspect]
     Indication: CONTRACEPTION
     Dosage: UNK UNK, UNKNOWN
     Route: 048
     Dates: start: 20040425, end: 20040527
  2. DICLON (DICLOFENAC SODIUM) [Suspect]
     Indication: BACK PAIN
     Dosage: UNK
     Dates: start: 20040429, end: 20040429
  3. SEROXAT [Suspect]
     Indication: ANXIETY
     Dosage: 1 DF, UNKNOWN
     Route: 065
     Dates: start: 20020701
  4. AKARIN [Concomitant]
     Indication: DEPRESSION
     Dosage: 40 MG, QD
     Route: 048

REACTIONS (11)
  - Acute myocardial infarction [Recovered/Resolved with Sequelae]
  - Serotonin syndrome [Unknown]
  - Back pain [Unknown]
  - Restlessness [Not Recovered/Not Resolved]
  - Hyperhidrosis [Not Recovered/Not Resolved]
  - Paraesthesia [Unknown]
  - Chest pain [Unknown]
  - Palpitations [Not Recovered/Not Resolved]
  - Cardiac arrest [Recovered/Resolved]
  - Headache [Not Recovered/Not Resolved]
  - Weight increased [Not Recovered/Not Resolved]
